FAERS Safety Report 18440914 (Version 1)
Quarter: 2020Q4

REPORT INFORMATION
  Report Type: Spontaneous
  Country: US (occurrence: US)
  Receive Date: 20201029
  Receipt Date: 20201029
  Transmission Date: 20210114
  Serious: Yes (Hospitalization)
  Sender: FDA-Public Use
  Company Number: US-TAKEDA-US202010066

PATIENT
  Sex: Female

DRUGS (8)
  1. GATTEX [Suspect]
     Active Substance: TEDUGLUTIDE\WATER
     Indication: SHORT-BOWEL SYNDROME
     Dosage: 1.26 MILLIGRAM, 1X/DAY:QD
     Route: 058
     Dates: start: 20200217
  2. GATTEX [Suspect]
     Active Substance: TEDUGLUTIDE\WATER
     Indication: SHORT-BOWEL SYNDROME
     Dosage: 1.26 MILLIGRAM, 1X/DAY:QD
     Route: 058
     Dates: start: 20200217
  3. GATTEX [Suspect]
     Active Substance: TEDUGLUTIDE\WATER
     Indication: SHORT-BOWEL SYNDROME
     Dosage: 1.26 MILLIGRAM, 1X/DAY:QD
     Route: 058
     Dates: start: 20200217
  4. GATTEX [Suspect]
     Active Substance: TEDUGLUTIDE\WATER
     Indication: SHORT-BOWEL SYNDROME
     Dosage: 1.26 MILLIGRAM, 1X/DAY:QD
     Route: 058
     Dates: start: 20200217
  5. GATTEX [Suspect]
     Active Substance: TEDUGLUTIDE\WATER
     Dosage: 1.26 MILLIGRAM, 1X/DAY:QD
     Route: 058
     Dates: start: 20200218
  6. GATTEX [Suspect]
     Active Substance: TEDUGLUTIDE\WATER
     Dosage: 1.26 MILLIGRAM, 1X/DAY:QD
     Route: 058
     Dates: start: 20200218
  7. GATTEX [Suspect]
     Active Substance: TEDUGLUTIDE\WATER
     Dosage: 1.26 MILLIGRAM, 1X/DAY:QD
     Route: 058
     Dates: start: 20200218
  8. GATTEX [Suspect]
     Active Substance: TEDUGLUTIDE\WATER
     Dosage: 1.26 MILLIGRAM, 1X/DAY:QD
     Route: 058
     Dates: start: 20200218

REACTIONS (2)
  - Needle issue [Unknown]
  - Hospitalisation [Unknown]
